FAERS Safety Report 23682102 (Version 1)
Quarter: 2024Q1

REPORT INFORMATION
  Report Type: Spontaneous
  Country: CN (occurrence: CN)
  Receive Date: 20240328
  Receipt Date: 20240328
  Transmission Date: 20240410
  Serious: Yes (Other)
  Sender: FDA-Public Use
  Company Number: CN-ABBVIE-5692438

PATIENT
  Age: 18 Year
  Sex: Male
  Weight: 67 kg

DRUGS (2)
  1. VENETOCLAX [Suspect]
     Active Substance: VENETOCLAX
     Indication: Chemotherapy
     Dosage: 200 MILLIGRAM
     Route: 048
     Dates: start: 20240227, end: 20240302
  2. VENETOCLAX [Suspect]
     Active Substance: VENETOCLAX
     Indication: Chemotherapy
     Dosage: 400 MILLIGRAM
     Route: 048
     Dates: start: 20240302, end: 20240310

REACTIONS (2)
  - Drug-induced liver injury [Recovering/Resolving]
  - Hyperuricaemia [Recovering/Resolving]

NARRATIVE: CASE EVENT DATE: 20240312
